FAERS Safety Report 5019113-9 (Version None)
Quarter: 2006Q2

REPORT INFORMATION
  Report Type: 
  Country: None (occurrence: None)
  Receive Date: 20060606
  Receipt Date: 20060522
  Transmission Date: 20061013
  Serious: Yes (Life-Threatening, Hospitalization, Other)
  Sender: FDA-Public Use
  Company Number: US-MERCK-0605USA04111

PATIENT
  Age: 52 Year
  Sex: Female
  Weight: 132 kg

DRUGS (8)
  1. HYZAAR [Suspect]
     Route: 048
     Dates: start: 20050118, end: 20050124
  2. AMARYL [Concomitant]
     Route: 065
  3. LEXAPRO [Concomitant]
     Route: 065
  4. LIPITOR [Concomitant]
     Route: 065
  5. NORVASC [Concomitant]
     Route: 065
  6. TOPROL-XL [Concomitant]
     Route: 065
  7. CALCIUM (UNSPECIFIED) [Concomitant]
     Route: 065
  8. ASPIRIN [Concomitant]
     Route: 065

REACTIONS (4)
  - ATRIAL FIBRILLATION [None]
  - DEPRESSION [None]
  - HYPERCALCAEMIA [None]
  - PSYCHOTIC DISORDER [None]
